FAERS Safety Report 10388895 (Version 1)
Quarter: 2014Q1

REPORT INFORMATION
  Report Type: Spontaneous
  Country: US (occurrence: None)
  Receive Date: 20140306
  Receipt Date: 20140306
  Transmission Date: 20141002
  Serious: Yes (Other)
  Sender: FDA-Public Use
  Company Number: 163-21880-13070741

PATIENT
  Age: 66 Year
  Sex: Female
  Weight: 72.6 kg

DRUGS (31)
  1. REVLIMID [Suspect]
     Indication: PLASMA CELL MYELOMA
     Route: 048
     Dates: start: 200809
  2. ASPIRIN (ACETYLSALICYLIC ACID) [Concomitant]
  3. ZOFRAN (ONDANSETRON HYDROCHLORIDE) [Concomitant]
  4. ADVAIR DISKUS [Concomitant]
  5. ZOVIRAX (ACICLOVIR) [Concomitant]
  6. NEXIUM (ESOMEPRAZOLE) [Concomitant]
  7. BACTRIM DS [Concomitant]
  8. LIDODERM (LIDOCAINE) (POULTICE OR PATCH) [Concomitant]
  9. PERCOCET (OXYCOCET) [Concomitant]
  10. DILAUDID (HYDROMORPHONE HYDROCHLORIDE) [Concomitant]
  11. STOOL SOFTENER (DOCUSATE SODIUM) [Concomitant]
  12. ACYCLOVIR [Concomitant]
  13. ALLOPURINOL [Concomitant]
  14. WARFARIN SODIUM [Concomitant]
  15. LIDOCAINE-HC (LIDOCAINE) [Concomitant]
  16. FIBERCON (POLYCARBOPHIL CALCIUM) [Concomitant]
  17. PREDNISONE [Concomitant]
  18. DEXAMETHASONE [Concomitant]
  19. POTASSIUM CL ER (POTASSIUM CHLORIDE) [Concomitant]
  20. VELCADE (BORTEZOMIB) [Concomitant]
  21. CORTISONE [Concomitant]
  22. EMLA [Concomitant]
  23. KLOR-CON (POTASSIUM CHLORIDE) [Concomitant]
  24. TUSSIONEX (TUSSIONEX PENNKINETIC) [Concomitant]
  25. ZYLOPRIM (ALLOPURINOL) [Concomitant]
  26. ZOMETA (ZOLEDRONIC ACID) [Concomitant]
  27. PNEUMOCOCCAL VACCINE [Concomitant]
  28. HAEMOPHILUS INFLUENZA VACCINE [Concomitant]
  29. TETANUS DIPTHERIA TOXOID VACCINE [Concomitant]
  30. POLIO VACCINE [Concomitant]
  31. HEPATITIS B VACCINE [Concomitant]

REACTIONS (4)
  - Pulmonary embolism [None]
  - Cataract [None]
  - Asthma [None]
  - Plasma cell myeloma [None]
